FAERS Safety Report 6417319-5 (Version None)
Quarter: 2009Q4

REPORT INFORMATION
  Report Type: 
  Country: None (occurrence: None)
  Receive Date: 20091028
  Receipt Date: 20091020
  Transmission Date: 20100525
  Serious: Yes (Hospitalization)
  Sender: FDA-Public Use
  Company Number: PHHO2009JP12992

PATIENT
  Sex: Male
  Weight: 66 kg

DRUGS (8)
  1. EXELON [Suspect]
     Indication: DEMENTIA ALZHEIMER'S TYPE
     Dosage: DL1
     Route: 062
     Dates: start: 20081220, end: 20090115
  2. EXELON [Suspect]
     Dosage: DL2
     Route: 062
     Dates: start: 20090116, end: 20090219
  3. EXELON [Suspect]
     Dosage: DL3
     Route: 062
     Dates: start: 20090220, end: 20090312
  4. EXELON [Suspect]
     Dosage: DL4
     Route: 062
     Dates: start: 20090313, end: 20091019
  5. SYMMETREL [Concomitant]
     Indication: PARKINSON'S DISEASE
     Dosage: UNK
     Dates: start: 20021220
  6. LUVOX [Concomitant]
     Indication: DEPRESSION
     Dosage: UNK
     Dates: start: 20030124
  7. NU-LOTAN [Concomitant]
     Indication: HYPERTENSION
     Dosage: UNK
     Dates: start: 20090305
  8. PLETAL [Concomitant]
     Indication: CEREBRAL INFARCTION
     Dosage: UNK
     Dates: start: 20070601

REACTIONS (2)
  - ASTHENIA [None]
  - CEREBRAL INFARCTION [None]
